FAERS Safety Report 5772693-8 (Version None)
Quarter: 2008Q2

REPORT INFORMATION
  Report Type: 
  Country: None (occurrence: None)
  Receive Date: 20080613
  Receipt Date: 20080604
  Transmission Date: 20081010
  Serious: Yes (Hospitalization)
  Sender: FDA-Public Use
  Company Number: CA-BOEHRINGER INGELHEIM GMBH, GERMANY-2008-CN-00236CN

PATIENT
  Sex: Female

DRUGS (9)
  1. AGGRENOX [Suspect]
     Route: 048
     Dates: start: 20080502, end: 20080513
  2. COLACE [Concomitant]
  3. COZAAR [Concomitant]
  4. CRESTOR [Concomitant]
  5. DIGOXIN [Concomitant]
  6. DIAZIDE [Concomitant]
  7. TRAZODONE HCL [Concomitant]
  8. TYLENOL [Concomitant]
  9. NITROGLYCERIN [Concomitant]

REACTIONS (1)
  - RENAL FAILURE ACUTE [None]
